FAERS Safety Report 8482873-9 (Version None)
Quarter: 2012Q3

REPORT INFORMATION
  Report Type: 
  Country: None (occurrence: None)
  Receive Date: 20120702
  Receipt Date: 20120619
  Transmission Date: 20120928
  Serious: Yes (Hospitalization)
  Sender: FDA-Public Use
  Company Number: US-ACTELION-A-NJ2012-67796

PATIENT

DRUGS (2)
  1. EPOPROSTENOL SODIUM [Suspect]
     Indication: PULMONARY ARTERIAL HYPERTENSION
     Dosage: 40 NG/KG, PER MIN
     Route: 041
     Dates: start: 20120101
  2. SILDENAFIL [Concomitant]

REACTIONS (3)
  - OEDEMA [None]
  - RECTAL HAEMORRHAGE [None]
  - VOMITING [None]
